FAERS Safety Report 17654920 (Version 8)
Quarter: 2020Q4

REPORT INFORMATION
  Report Type: Report from Study
  Country: CA (occurrence: CA)
  Receive Date: 20200410
  Receipt Date: 20201005
  Transmission Date: 20210113
  Serious: Yes (Hospitalization, Other)
  Sender: FDA-Public Use
  Company Number: CA-GLAXOSMITHKLINE-CA2020AMR048085

PATIENT
  Sex: Female

DRUGS (1)
  1. MEPOLIZUMAB [Suspect]
     Active Substance: MEPOLIZUMAB
     Indication: ASTHMA
     Dosage: 100 MG, Z(MONTHLY)
     Route: 042
     Dates: start: 20161104

REACTIONS (20)
  - Vomiting [Unknown]
  - Illness [Unknown]
  - Renal disorder [Not Recovered/Not Resolved]
  - Confusional state [Unknown]
  - Peripheral swelling [Unknown]
  - Acute kidney injury [Recovering/Resolving]
  - Cystic fibrosis [Unknown]
  - Hallucination [Unknown]
  - Lower respiratory tract infection [Unknown]
  - Thrombosis [Unknown]
  - Fluid retention [Unknown]
  - Social problem [Unknown]
  - Urinary retention [Unknown]
  - Underweight [Unknown]
  - Inappropriate schedule of product administration [Unknown]
  - Nausea [Unknown]
  - Tremor [Unknown]
  - Asthenia [Unknown]
  - Hospitalisation [Unknown]
  - Drug hypersensitivity [Unknown]
